FAERS Safety Report 8045785-0 (Version None)
Quarter: 2012Q1

REPORT INFORMATION
  Report Type: 
  Country: None (occurrence: None)
  Receive Date: 20120113
  Receipt Date: 20120104
  Transmission Date: 20120608
  Serious: Yes (Death)
  Sender: FDA-Public Use
  Company Number: US-MYLANLABS-2010S1002401

PATIENT
  Age: 49 Year
  Sex: Female
  Weight: 99.79 kg

DRUGS (17)
  1. TIZANIDINE HYDROCHLORIDE [Concomitant]
     Dosage: 2MG QAM AND 6MG HS
     Route: 048
  2. STRATTERA [Concomitant]
     Route: 048
  3. TRAMADOL HYDROCHLORIDE AND ACETAMINOPHEN [Concomitant]
     Route: 048
  4. IBUPROFEN [Concomitant]
  5. LIDODERM [Concomitant]
  6. LYRICA [Concomitant]
  7. AZITHROMYCIN [Concomitant]
  8. NASONEX [Concomitant]
     Route: 055
  9. LUNESTA [Concomitant]
  10. DIPHENHYDRAMINE HCL [Suspect]
  11. NORTRIPTYLINE HCL [Suspect]
     Route: 048
  12. DURAGESIC-100 [Suspect]
     Indication: PAIN
     Route: 062
     Dates: start: 20040101
  13. FENTANYL-100 [Suspect]
     Indication: PAIN
     Route: 062
  14. CYMBALTA [Suspect]
     Route: 048
  15. FLUOXETINE [Suspect]
  16. NORTRIPTYLINE HCL [Suspect]
     Route: 048
  17. HYDROCODONE BIT. AND HOMATROPINE METH. [Suspect]
     Indication: INSOMNIA
     Dosage: PRN HS
     Route: 048

REACTIONS (2)
  - OVERDOSE [None]
  - TOXICITY TO VARIOUS AGENTS [None]
